FAERS Safety Report 8813323 (Version 2)
Quarter: 2012Q4

REPORT INFORMATION
  Report Type: 
  Country: US (occurrence: US)
  Receive Date: 20120927
  Receipt Date: 20121219
  Transmission Date: 20130627
  Serious: No
  Sender: FDA-Public Use
  Company Number: US-AMGEN-USASP2012047665

PATIENT
  Age: 81 Year
  Sex: Female

DRUGS (3)
  1. PROLIA [Suspect]
     Indication: PRODUCT USED FOR UNKNOWN INDICATION
     Dosage: UNK UNK, q6mo
     Dates: start: 20120604
  2. PROLIA [Suspect]
  3. METOPROLOL [Concomitant]
     Dosage: UNK

REACTIONS (14)
  - Groin pain [Not Recovered/Not Resolved]
  - Dysuria [Not Recovered/Not Resolved]
  - Pain [Not Recovered/Not Resolved]
  - Mobility decreased [Not Recovered/Not Resolved]
  - Pain in extremity [Not Recovered/Not Resolved]
  - Glucose tolerance impaired [Unknown]
  - Gastritis atrophic [Unknown]
  - Myositis [Unknown]
  - Myalgia [Unknown]
  - Urinary tract infection [Unknown]
  - Rash papular [Unknown]
  - Back pain [Unknown]
  - Chills [Unknown]
  - Cystitis [Unknown]
